FAERS Safety Report 25949658 (Version 4)
Quarter: 2025Q4

REPORT INFORMATION
  Report Type: Spontaneous
  Country: JP (occurrence: JP)
  Receive Date: 20251022
  Receipt Date: 20251208
  Transmission Date: 20260117
  Serious: Yes (Hospitalization, Other)
  Sender: BRISTOL-MYERS SQUIBB COMPANY
  Company Number: JP-BRISTOL-MYERS SQUIBB COMPANY-2025-143271

PATIENT
  Age: 72 Year
  Sex: Male

DRUGS (1)
  1. VIDAZA [Suspect]
     Active Substance: AZACITIDINE
     Indication: Myelodysplastic syndrome
     Route: 042

REACTIONS (2)
  - Pneumonia [Unknown]
  - Hypersensitivity [Recovered/Resolved]
